FAERS Safety Report 9353249 (Version 1)
Quarter: 2013Q2

REPORT INFORMATION
  Report Type: Spontaneous
  Country: FR (occurrence: FR)
  Receive Date: 20130618
  Receipt Date: 20130618
  Transmission Date: 20140414
  Serious: Yes (Other)
  Sender: FDA-Public Use
  Company Number: FR-AMGEN-FRASP2013042371

PATIENT
  Age: 63 Year
  Sex: Male

DRUGS (4)
  1. ENBREL [Suspect]
     Indication: PRODUCT USED FOR UNKNOWN INDICATION
     Dosage: 50 MG, WEEKLY
     Route: 058
     Dates: start: 201203, end: 201209
  2. METHOTREXATE SODIUM [Suspect]
     Dosage: UNK
     Dates: end: 201107
  3. ARAVA [Suspect]
     Dosage: 20 MG, 1X/DAY
     Route: 048
     Dates: start: 201107, end: 20120910
  4. CORTANCYL [Concomitant]
     Dosage: 7.5 MG, 1X/DAY
     Route: 048

REACTIONS (2)
  - Malignant melanoma [Recovering/Resolving]
  - Actinomycotic pulmonary infection [Unknown]
